FAERS Safety Report 11714766 (Version 2)
Quarter: 2015Q4

REPORT INFORMATION
  Report Type: Report from Study
  Country: TH (occurrence: TH)
  Receive Date: 20151109
  Receipt Date: 20151112
  Transmission Date: 20160304
  Serious: Yes (Death, Hospitalization, Disabling)
  Sender: FDA-Public Use
  Company Number: PHHO2015TH013850

PATIENT
  Age: 68 Year
  Sex: Male
  Weight: 65 kg

DRUGS (1)
  1. LDK378 [Suspect]
     Active Substance: CERITINIB
     Indication: NON-SMALL CELL LUNG CANCER
     Dosage: 750 MG, QD
     Route: 048
     Dates: start: 20151016, end: 20151030

REACTIONS (6)
  - Pneumonia aspiration [Recovering/Resolving]
  - Vasogenic cerebral oedema [Recovering/Resolving]
  - Malignant neoplasm progression [Fatal]
  - Metastases to central nervous system [Recovering/Resolving]
  - Dyspnoea [Unknown]
  - Altered state of consciousness [Not Recovered/Not Resolved]

NARRATIVE: CASE EVENT DATE: 20150902
